FAERS Safety Report 9343043 (Version 1)
Quarter: 2013Q2

REPORT INFORMATION
  Report Type: Spontaneous
  Country: US (occurrence: US)
  Receive Date: 20130611
  Receipt Date: 20130611
  Transmission Date: 20140414
  Serious: No
  Sender: FDA-Public Use
  Company Number: US-009507513-1306USA003674

PATIENT
  Sex: 0

DRUGS (1)
  1. EMEND [Suspect]

REACTIONS (2)
  - Wrong technique in drug usage process [Unknown]
  - Incorrect storage of drug [Unknown]
